FAERS Safety Report 8355004-3 (Version None)
Quarter: 2012Q2

REPORT INFORMATION
  Report Type: 
  Country: None (occurrence: None)
  Receive Date: 20120510
  Receipt Date: 20120425
  Transmission Date: 20120825
  Serious: Yes (Other)
  Sender: FDA-Public Use
  Company Number: 2012P1021198

PATIENT
  Age: 62 Year
  Sex: Male

DRUGS (2)
  1. CEFTAZIDIME [Suspect]
     Indication: ENTEROBACTER INFECTION
     Dosage: ;QD;
     Dates: start: 20110826, end: 20110903
  2. CEFTAZIDIME [Suspect]
     Indication: PSEUDOMONAS INFECTION
     Dosage: ;QD;
     Dates: start: 20110826, end: 20110903

REACTIONS (2)
  - SEPTIC SHOCK [None]
  - CLOSTRIDIUM DIFFICILE COLITIS [None]
